FAERS Safety Report 21815359 (Version 1)
Quarter: 2023Q1

REPORT INFORMATION
  Report Type: Spontaneous
  Country: US (occurrence: US)
  Receive Date: 20230104
  Receipt Date: 20230104
  Transmission Date: 20230417
  Serious: No
  Sender: FDA-Public Use
  Company Number: US-LEO Pharma-348165

PATIENT
  Sex: Female

DRUGS (8)
  1. ADBRY [Suspect]
     Active Substance: TRALOKINUMAB-LDRM
     Indication: Dermatitis atopic
     Dosage: DOSAGE : 600 MG FOR THE INITIAL DOSE
     Route: 058
     Dates: start: 20220502
  2. ADBRY [Suspect]
     Active Substance: TRALOKINUMAB-LDRM
     Indication: Dermatitis atopic
     Dosage: DOSAGE : 600 MG FOR THE INITIAL DOSE
     Route: 058
     Dates: start: 20220502
  3. ADBRY [Suspect]
     Active Substance: TRALOKINUMAB-LDRM
     Indication: Dermatitis atopic
     Dosage: DOSAGE: 300 MG EVERY TWO WEEKS ADMINISTERED SUBCUTANEOUSLY
     Route: 058
  4. ADBRY [Suspect]
     Active Substance: TRALOKINUMAB-LDRM
     Indication: Dermatitis atopic
     Dosage: DOSAGE: 300 MG EVERY TWO WEEKS ADMINISTERED SUBCUTANEOUSLY
     Route: 058
  5. ADBRY [Suspect]
     Active Substance: TRALOKINUMAB-LDRM
     Indication: Dermatitis atopic
     Dosage: DOSAGE : 600 MG FOR THE INITIAL DOSE
     Route: 058
     Dates: start: 20220502
  6. ADBRY [Suspect]
     Active Substance: TRALOKINUMAB-LDRM
     Indication: Dermatitis atopic
     Dosage: DOSAGE : 600 MG FOR THE INITIAL DOSE
     Route: 058
     Dates: start: 20220502
  7. ADBRY [Suspect]
     Active Substance: TRALOKINUMAB-LDRM
     Indication: Dermatitis atopic
     Dosage: DOSAGE: 300 MG EVERY TWO WEEKS ADMINISTERED SUBCUTANEOUSLY
     Route: 058
  8. ADBRY [Suspect]
     Active Substance: TRALOKINUMAB-LDRM
     Indication: Dermatitis atopic
     Dosage: DOSAGE: 300 MG EVERY TWO WEEKS ADMINISTERED SUBCUTANEOUSLY
     Route: 058

REACTIONS (1)
  - Blepharospasm [Unknown]
